FAERS Safety Report 6874756-2 (Version None)
Quarter: 2010Q3

REPORT INFORMATION
  Report Type: 
  Country: None (occurrence: None)
  Receive Date: 20100723
  Receipt Date: 20100709
  Transmission Date: 20110219
  Serious: Yes (Hospitalization)
  Sender: FDA-Public Use
  Company Number: WAES 1006USA01878

PATIENT
  Age: 62 Year
  Sex: Male
  Weight: 81.6475 kg

DRUGS (4)
  1. CAP VORINOSTAT UNK [Suspect]
     Dosage: 200 MG/BID/PO
     Route: 048
     Dates: start: 20100424
  2. TACROLIMUS [Suspect]
  3. MYCOPHENOLATE MOFETIL [Suspect]
  4. VANCOMYCIN [Concomitant]

REACTIONS (9)
  - ABDOMINAL PAIN [None]
  - BACTERAEMIA [None]
  - BACTERIAL INFECTION [None]
  - DEVICE RELATED INFECTION [None]
  - DIARRHOEA [None]
  - GRAFT VERSUS HOST DISEASE [None]
  - MICROCOCCUS TEST POSITIVE [None]
  - NAUSEA [None]
  - STAPHYLOCOCCUS TEST POSITIVE [None]
